FAERS Safety Report 7475129-4 (Version None)
Quarter: 2011Q2

REPORT INFORMATION
  Report Type: 
  Country: None (occurrence: None)
  Receive Date: 20110512
  Receipt Date: 20110427
  Transmission Date: 20111010
  Serious: Yes (Hospitalization, Other)
  Sender: FDA-Public Use
  Company Number: US-ELI_LILLY_AND_COMPANY-US201105000334

PATIENT
  Sex: Female

DRUGS (1)
  1. FORTEO [Suspect]
     Indication: OSTEOPOROSIS
     Dosage: 20 UG, QD
     Route: 065
     Dates: start: 20100501

REACTIONS (7)
  - PNEUMONIA [None]
  - FALL [None]
  - PYREXIA [None]
  - OXYGEN SATURATION DECREASED [None]
  - HYPOTENSION [None]
  - RIB FRACTURE [None]
  - ASTHENIA [None]
